FAERS Safety Report 24194534 (Version 1)
Quarter: 2024Q3

REPORT INFORMATION
  Report Type: Spontaneous
  Country: DK (occurrence: DK)
  Receive Date: 20240809
  Receipt Date: 20240809
  Transmission Date: 20241016
  Serious: Yes (Hospitalization)
  Sender: NOVA LABORATORIES
  Company Number: DK-Nova Laboratories Limited-2160239

PATIENT
  Age: 19 Year
  Sex: Male
  Weight: 56 kg

DRUGS (6)
  1. PURIXAN [Suspect]
     Active Substance: MERCAPTOPURINE
     Indication: Product used for unknown indication
  2. REMICADE [Suspect]
     Active Substance: INFLIXIMAB
     Route: 042
     Dates: start: 20101126, end: 20120127
  3. INFLIXIMAB [Suspect]
     Active Substance: INFLIXIMAB
     Dates: start: 20150817
  4. REMICADE [Suspect]
     Active Substance: INFLIXIMAB
     Route: 042
     Dates: start: 20141121, end: 20150629
  5. REMICADE [Suspect]
     Active Substance: INFLIXIMAB
     Route: 042
     Dates: start: 20120522, end: 20141006
  6. REMICADE [Suspect]
     Active Substance: INFLIXIMAB
     Route: 042
     Dates: start: 20120309, end: 20120427

REACTIONS (6)
  - Stomatitis [Recovered/Resolved]
  - Skin infection [Recovered/Resolved]
  - Weight decreased [Recovered/Resolved]
  - Peritonitis [Recovered/Resolved]
  - Crohn^s disease [Recovered/Resolved]
  - Anastomotic leak [Recovered/Resolved]

NARRATIVE: CASE EVENT DATE: 20170714
